FAERS Safety Report 8962565 (Version 2)
Quarter: 2012Q4

REPORT INFORMATION
  Report Type: Report from Study
  Country: DE (occurrence: DE)
  Receive Date: 20121213
  Receipt Date: 20121217
  Transmission Date: 20130627
  Serious: Yes (Hospitalization)
  Sender: FDA-Public Use
  Company Number: DE-PFIZER INC-DEWYE726308JUN05

PATIENT
  Age: 64 Year
  Sex: Female

DRUGS (46)
  1. SIROLIMUS [Suspect]
     Indication: PROPHYLAXIS AGAINST TRANSPLANT REJECTION
     Dosage: 9 mg, 1x/day
     Route: 048
     Dates: start: 20040311, end: 20040312
  2. SIROLIMUS [Suspect]
     Dosage: 1 mg, 1x/day
     Route: 048
     Dates: start: 20040313, end: 20041010
  3. SIROLIMUS [Suspect]
     Dosage: 2 mg, 1x/day
     Route: 048
     Dates: start: 20041011, end: 20041018
  4. SIROLIMUS [Suspect]
     Dosage: 3 mg, 1x/day
     Route: 048
     Dates: start: 20041019, end: 20041211
  5. SIROLIMUS [Suspect]
     Dosage: 5 mg, 1x/day
     Route: 048
     Dates: start: 20050916
  6. HYDROCORTISONE [Suspect]
     Dosage: 100 mg, 1x/day
     Route: 042
     Dates: start: 20041212
  7. ZENAPAX [Suspect]
     Indication: PROPHYLAXIS AGAINST TRANSPLANT REJECTION
     Dosage: 130 mg, 1x/day
     Route: 042
     Dates: start: 20040311, end: 20040311
  8. ZENAPAX [Suspect]
     Dosage: 65 mg/24h, 1x/2 Wk
     Route: 042
     Dates: start: 20040326, end: 20040506
  9. MYCOPHENOLATE MOFETIL [Suspect]
     Indication: PROPHYLAXIS AGAINST TRANSPLANT REJECTION
     Dosage: 1 g, 1x/day
     Route: 048
     Dates: start: 20040311, end: 20040311
  10. MYCOPHENOLATE MOFETIL [Suspect]
     Dosage: 1 g, 2x/day
     Route: 048
     Dates: start: 20040312, end: 20040609
  11. MYCOPHENOLATE MOFETIL [Suspect]
     Dosage: 0.5 g, 2x/day
     Route: 048
     Dates: start: 20040610, end: 20041210
  12. MYCOPHENOLATE MOFETIL [Suspect]
     Dosage: 0.5 g, 2x/day
     Route: 048
     Dates: start: 20050315, end: 20050509
  13. MYCOPHENOLATE MOFETIL [Suspect]
     Dosage: 0.25 g, 2x/day
     Route: 048
     Dates: start: 20050516, end: 20050923
  14. PREDNISOLONE SODIUM SUCCINATE [Suspect]
     Indication: PROPHYLAXIS AGAINST TRANSPLANT REJECTION
     Dosage: 250 mg, 2x/day
     Route: 042
     Dates: start: 20040311, end: 20040311
  15. PREDNISOLONE SODIUM SUCCINATE [Suspect]
     Dosage: 125 mg, 1x/day
     Route: 042
     Dates: start: 20040312, end: 20040312
  16. PREDNISOLONE SODIUM SUCCINATE [Suspect]
     Dosage: 5.0 mg, 1x/day
     Route: 065
     Dates: start: 2004, end: 20050905
  17. DECORTIN [Suspect]
     Indication: PROPHYLAXIS AGAINST TRANSPLANT REJECTION
     Dosage: 20 mg, 1x/day
     Route: 048
     Dates: start: 20040313, end: 2004
  18. DECORTIN [Suspect]
     Dosage: 10 mg, 1x/day
     Route: 065
     Dates: start: 20041013, end: 20041211
  19. DECORTIN [Suspect]
     Dosage: UNK
     Route: 048
  20. DECORTIN [Suspect]
     Dosage: 5 mg, 1x/day
     Route: 048
     Dates: start: 2004, end: 20041012
  21. PREDNISOLONE [Suspect]
     Indication: PROPHYLAXIS AGAINST TRANSPLANT REJECTION
     Dosage: 10 mg, 1x/day
     Route: 048
     Dates: start: 20040313
  22. CICLOSPORIN [Suspect]
     Dosage: 200mg on 15Dec2004, later 75mg per day until 21-jun-2005
     Route: 048
  23. NORVASC [Concomitant]
     Dosage: 5 - 10 mg
     Route: 065
     Dates: start: 20040311, end: 20040910
  24. AMPHO-MORONAL [Concomitant]
     Dosage: UNK
     Route: 065
     Dates: start: 20040312, end: 20040429
  25. SORTIS [Concomitant]
     Dosage: 20 - 40 mg
     Route: 065
     Dates: start: 20040313, end: 20050314
  26. ROCEPHIN [Concomitant]
     Dosage: 2 g, UNK
     Route: 042
     Dates: start: 20040311
  27. ROCEPHIN [Concomitant]
     Dosage: UNK
     Route: 042
     Dates: start: 20051012, end: 20051018
  28. CEFUROXIME [Concomitant]
     Dosage: UNK
     Route: 065
     Dates: start: 20050224, end: 2005
  29. ZIENAM [Concomitant]
     Dosage: 1 g, 3x/day
     Route: 042
     Dates: start: 20040423, end: 20040427
  30. ZIENAM [Concomitant]
     Dosage: 1 g, 3x/day
     Route: 042
     Dates: start: 20040505, end: 20040512
  31. ZIENAM [Concomitant]
     Dosage: 500 mg, 3x/day
     Route: 042
     Dates: start: 20040526, end: 20040530
  32. ZIENAM [Concomitant]
     Dosage: 1 g, 3x/day
     Route: 042
     Dates: start: 20050509, end: 20050512
  33. ZIENAM [Concomitant]
     Dosage: 1 g, 3x/day
     Route: 042
     Dates: start: 20060307, end: 20060312
  34. CIPROFLOXACIN [Concomitant]
     Dosage: UNK
     Route: 065
     Dates: start: 20051013, end: 20051023
  35. CIPROBAY [Concomitant]
     Dosage: 400 - 500 mg
     Route: 065
     Dates: start: 20040407, end: 20060701
  36. LOCOL [Concomitant]
     Dosage: 20 - 40 mg
     Route: 065
     Dates: start: 20050612, end: 20060307
  37. CYMEVENE [Concomitant]
     Dosage: UNK
     Route: 065
     Dates: start: 20040311
  38. CLONT [Concomitant]
     Dosage: UNK
     Route: 042
     Dates: start: 20051012, end: 20051018
  39. SIMVASTATIN [Concomitant]
     Dosage: UNK
     Route: 065
     Dates: start: 20060307
  40. SIMVASTATIN [Concomitant]
     Dosage: UNK
     Route: 065
     Dates: start: 20050315, end: 20050612
  41. COTRIMEL FORTE [Concomitant]
     Dosage: UNK
     Route: 065
     Dates: start: 20040317, end: 20040424
  42. TACROLIMUS [Concomitant]
     Dosage: UNK
     Route: 048
     Dates: start: 20050620, end: 20051011
  43. VALCYTE [Concomitant]
     Dosage: 450 mg, UNK
     Route: 048
     Dates: start: 20040315, end: 20040919
  44. ACTRAPID [Concomitant]
     Route: 058
  45. DILATREND [Concomitant]
     Dosage: 12.5 mg, 2x/day
     Route: 048
     Dates: start: 20040311
  46. SIMVABETA [Concomitant]
     Dosage: 30 mg, UNK
     Route: 048
     Dates: start: 20050315, end: 20050612

REACTIONS (5)
  - Urinary tract infection [Recovered/Resolved]
  - Urosepsis [Recovered/Resolved]
  - Gastroenteritis [Recovered/Resolved]
  - Pyelonephritis [Recovered/Resolved]
  - Squamous cell carcinoma [Unknown]
